FAERS Safety Report 12049873 (Version 3)
Quarter: 2016Q3

REPORT INFORMATION
  Report Type: Spontaneous
  Country: GB (occurrence: GB)
  Receive Date: 20160208
  Receipt Date: 20160901
  Transmission Date: 20161109
  Serious: Yes (Hospitalization, Other)
  Sender: FDA-Public Use
  Company Number: PHHY2016GB013840

PATIENT
  Age: 77 Year
  Sex: Female

DRUGS (13)
  1. MOVICOL [Concomitant]
     Active Substance: POLYETHYLENE GLYCOL 3350\POTASSIUM CHLORIDE\SODIUM BICARBONATE\SODIUM CHLORIDE
     Indication: CONSTIPATION
     Route: 065
  2. MACROGOL [Concomitant]
     Active Substance: POLYETHYLENE GLYCOLS
     Indication: CONSTIPATION
     Route: 065
  3. HERCEPTIN [Suspect]
     Active Substance: TRASTUZUMAB
     Indication: PRODUCT USED FOR UNKNOWN INDICATION
     Route: 058
  4. PERTUZUMAB [Suspect]
     Active Substance: PERTUZUMAB
     Indication: PRODUCT USED FOR UNKNOWN INDICATION
     Dosage: 420 MG, UNK
     Route: 065
  5. DOCETAXEL. [Suspect]
     Active Substance: DOCETAXEL
     Indication: PRODUCT USED FOR UNKNOWN INDICATION
     Dosage: UNK
     Route: 065
  6. PERTUZUMAB [Suspect]
     Active Substance: PERTUZUMAB
     Dosage: CYCLE 8, CYCLE 10
     Route: 065
  7. GELCLAIR                                /UNK/ [Concomitant]
     Active Substance: HYALURONATE SODIUM\HYALURONIC ACID
     Indication: ORAL PAIN
     Route: 065
  8. XGEVA [Concomitant]
     Active Substance: DENOSUMAB
     Indication: METASTASES TO BONE
     Route: 065
  9. CIPROFLOXACIN. [Concomitant]
     Active Substance: CIPROFLOXACIN
     Indication: PRODUCT USED FOR UNKNOWN INDICATION
     Route: 065
  10. NEULASTA [Suspect]
     Active Substance: PEGFILGRASTIM
     Indication: PRODUCT USED FOR UNKNOWN INDICATION
     Route: 065
     Dates: start: 20150730
  11. METOCLOPRAMIDE. [Concomitant]
     Active Substance: METOCLOPRAMIDE
     Indication: NAUSEA
     Route: 065
  12. DOXYCYCLINE. [Concomitant]
     Active Substance: DOXYCYCLINE
     Indication: PRODUCT USED FOR UNKNOWN INDICATION
     Route: 065
  13. HERCEPTIN [Suspect]
     Active Substance: TRASTUZUMAB
     Dosage: CYCLE 2,CYCLE 8, CYCLE 10
     Route: 058

REACTIONS (52)
  - Tongue coated [Unknown]
  - Feeling abnormal [Unknown]
  - Bone pain [Unknown]
  - Hypoaesthesia [Unknown]
  - Vascular fragility [Unknown]
  - Constipation [Recovering/Resolving]
  - Onychoclasis [Unknown]
  - Headache [Unknown]
  - Pollakiuria [Recovered/Resolved]
  - Ulcer [Unknown]
  - Lower respiratory tract infection [Unknown]
  - Diarrhoea [Unknown]
  - Paraesthesia [Unknown]
  - Alopecia [Recovered/Resolved]
  - Productive cough [Recovered/Resolved]
  - Arthralgia [Unknown]
  - Dyspnoea exertional [Unknown]
  - Seroma [Unknown]
  - Pain in extremity [Unknown]
  - Vaginal prolapse [Unknown]
  - Oral candidiasis [Unknown]
  - Decreased appetite [Recovering/Resolving]
  - Fatigue [Unknown]
  - Nausea [Recovered/Resolved]
  - Hypophagia [Unknown]
  - Oral pain [Unknown]
  - Asthenia [Unknown]
  - Lethargy [Unknown]
  - Dyspnoea [Recovered/Resolved]
  - Vein disorder [Unknown]
  - Glossodynia [Unknown]
  - Urinary tract infection [Unknown]
  - Mouth ulceration [Unknown]
  - Gingival pain [Unknown]
  - Anxiety [Unknown]
  - Contusion [Unknown]
  - Cellulitis [Recovered/Resolved]
  - Dysgeusia [Unknown]
  - Micturition urgency [Recovered/Resolved]
  - Mastectomy [Unknown]
  - Chest discomfort [Recovering/Resolving]
  - Insomnia [Unknown]
  - Cough [Recovered/Resolved]
  - Influenza like illness [Unknown]
  - Paraesthesia oral [Unknown]
  - Device dislocation [Unknown]
  - Irritable bowel syndrome [Not Recovered/Not Resolved]
  - Musculoskeletal discomfort [Unknown]
  - Breast mass [Unknown]
  - Sensory disturbance [Unknown]
  - Chronic obstructive pulmonary disease [Unknown]
  - Scar [Unknown]

NARRATIVE: CASE EVENT DATE: 20150730
